FAERS Safety Report 4339937-0 (Version None)
Quarter: 2004Q2

REPORT INFORMATION
  Report Type: 
  Country: None (occurrence: None)
  Receive Date: 20040416
  Receipt Date: 20040309
  Transmission Date: 20050107
  Serious: Yes (Life-Threatening, Hospitalization)
  Sender: FDA-Public Use
  Company Number: JP-GLAXOSMITHKLINE-B0326134A

PATIENT
  Age: 32 Year
  Sex: Female
  Weight: 40 kg

DRUGS (7)
  1. SAWACILLIN [Suspect]
     Indication: GASTRIC ULCER HELICOBACTER
     Dosage: 750MG TWICE PER DAY
     Route: 048
     Dates: start: 20040114, end: 20040120
  2. PARIET [Suspect]
     Indication: GASTRIC ULCER
     Dosage: 20MG PER DAY
     Route: 048
     Dates: start: 20040107, end: 20040209
  3. TAKEPRON [Suspect]
     Indication: GASTRIC ULCER HELICOBACTER
     Dosage: 30MG TWICE PER DAY
     Route: 048
     Dates: start: 20040114, end: 20040120
  4. CLARITH [Suspect]
     Indication: GASTRIC ULCER HELICOBACTER
     Dosage: 200MG TWICE PER DAY
     Route: 048
     Dates: start: 20040114, end: 20040120
  5. METHOTREXATE SODIUM [Suspect]
     Indication: PSORIASIS
     Dosage: 15MG WEEKLY
     Route: 048
     Dates: start: 19970101, end: 20040209
  6. PREDNISOLONE [Concomitant]
     Dates: end: 20040209
  7. IMURAN [Concomitant]
     Dates: end: 20040209

REACTIONS (5)
  - BONE MARROW DEPRESSION [None]
  - DRUG HYPERSENSITIVITY [None]
  - EPISTAXIS [None]
  - INFECTION [None]
  - PANCYTOPENIA [None]
